FAERS Safety Report 10248942 (Version 1)
Quarter: 2014Q2

REPORT INFORMATION
  Report Type: Spontaneous
  Country: US (occurrence: None)
  Receive Date: 20140618
  Receipt Date: 20140618
  Transmission Date: 20141212
  Serious: Yes (Life-Threatening)
  Sender: FDA-Public Use
  Company Number: None

PATIENT
  Age: 65 Year
  Sex: Male
  Weight: 70.1 kg

DRUGS (2)
  1. WARFARIN [Suspect]
     Indication: ATRIAL FIBRILLATION
     Route: 048
     Dates: start: 20130901, end: 20140515
  2. WARFARIN [Suspect]
     Indication: MITRAL VALVE REPAIR
     Route: 048
     Dates: start: 20130901, end: 20140515

REACTIONS (3)
  - Anaphylactic reaction [None]
  - Rash [None]
  - Hypotension [None]
